FAERS Safety Report 4533653-8 (Version None)
Quarter: 2004Q4

REPORT INFORMATION
  Report Type: 
  Country: None (occurrence: None)
  Receive Date: 20041207
  Receipt Date: 20040106
  Transmission Date: 20050328
  Serious: Yes (Hospitalization)
  Sender: FDA-Public Use
  Company Number: 355385

PATIENT
  Age: 76 Year
  Sex: Male

DRUGS (1)
  1. TAMIFLU [Suspect]
     Indication: PROPHYLAXIS
     Dosage: 75 MG    1 PER 2 DAY   ORAL
     Route: 048
     Dates: start: 20031225, end: 20040103

REACTIONS (3)
  - NAUSEA [None]
  - OVERDOSE [None]
  - VOMITING [None]
